FAERS Safety Report 4835429-0 (Version None)
Quarter: 2005Q4

REPORT INFORMATION
  Report Type: 
  Country: None (occurrence: None)
  Receive Date: 20051118
  Receipt Date: 20051103
  Transmission Date: 20060501
  Serious: Yes (Hospitalization)
  Sender: FDA-Public Use
  Company Number: PHBS2005FR15287

PATIENT
  Age: 38 Year
  Sex: Female

DRUGS (3)
  1. LOXEN (NICARDIPINE HYDROCHLORIDE)AMPOULE [Suspect]
     Indication: TOCOLYSIS
     Dosage: SEE IMAGE
     Route: 042
  2. SALBUTAMOL (NGX)(SALBUTAMOL) [Suspect]
     Indication: TOCOLYSIS
     Dosage: 1.2 MG/H, INTRAVENOUS
     Route: 042
  3. BETAMETHASONE [Suspect]
     Dosage: INTRAMUSCULAR
     Route: 030

REACTIONS (14)
  - ACUTE PULMONARY OEDEMA [None]
  - BLADDER DISTENSION [None]
  - CAESAREAN SECTION [None]
  - CARDIAC MURMUR [None]
  - CHOLESTASIS OF PREGNANCY [None]
  - CREPITATIONS [None]
  - CYANOSIS [None]
  - DRUG EFFECT DECREASED [None]
  - DRUG EXPOSURE DURING PREGNANCY [None]
  - HEART RATE INCREASED [None]
  - PREMATURE LABOUR [None]
  - RESPIRATORY DISTRESS [None]
  - RESPIRATORY RATE INCREASED [None]
  - TWIN PREGNANCY [None]
